FAERS Safety Report 7742157-0 (Version None)
Quarter: 2011Q3

REPORT INFORMATION
  Report Type: 
  Country: None (occurrence: None)
  Receive Date: 20110912
  Receipt Date: 20110907
  Transmission Date: 20111222
  Serious: Yes (Death, Hospitalization, Other)
  Sender: FDA-Public Use
  Company Number: PHFR2011IE02785

PATIENT
  Sex: Female

DRUGS (6)
  1. CLOZAPINE [Suspect]
     Route: 048
     Dates: end: 20110713
  2. DUPHALAC                                /NET/ [Concomitant]
     Indication: CONSTIPATION
     Dosage: 30 ML, DAILY
     Route: 048
  3. CLOZAPINE [Suspect]
     Indication: SCHIZOPHRENIA, PARANOID TYPE
     Dosage: 400 MG, DAILY
     Route: 048
     Dates: start: 19960708
  4. ARIPIPRAZOLE [Concomitant]
     Indication: PSYCHOTIC DISORDER
     Dosage: 20 MG, DAILY
     Route: 048
  5. MOVIPREP [Concomitant]
     Indication: CONSTIPATION
     Dosage: 3 DF, TID
     Route: 048
  6. DIAZEPAM [Concomitant]
     Indication: ANXIETY
     Dosage: 5 MG, TID
     Route: 048

REACTIONS (7)
  - METASTASES TO LIVER [None]
  - ANTIPSYCHOTIC DRUG LEVEL INCREASED [None]
  - HYPOTHYROIDISM [None]
  - RECTAL CANCER STAGE IV [None]
  - CARCINOEMBRYONIC ANTIGEN INCREASED [None]
  - METASTASES TO PERITONEUM [None]
  - CONSTIPATION [None]
